FAERS Safety Report 18599180 (Version 5)
Quarter: 2020Q4

REPORT INFORMATION
  Report Type: Report from Study
  Country: US (occurrence: US)
  Receive Date: 20201210
  Receipt Date: 20201231
  Transmission Date: 20210114
  Serious: Yes (Hospitalization, Other)
  Sender: FDA-Public Use
  Company Number: NVSC2020US328425

PATIENT
  Age: 55 Year
  Sex: Female
  Weight: 163 kg

DRUGS (3)
  1. TADALAFIL. [Concomitant]
     Active Substance: TADALAFIL
     Indication: PRODUCT USED FOR UNKNOWN INDICATION
     Dosage: UNK
     Route: 065
  2. TREPROSTINIL. [Suspect]
     Active Substance: TREPROSTINIL
     Dosage: UNK (7.5 NG/KG/MIN)
     Route: 042
     Dates: start: 20201203
  3. TREPROSTINIL. [Suspect]
     Active Substance: TREPROSTINIL
     Indication: PULMONARY ARTERIAL HYPERTENSION
     Dosage: UNK, CONT (6.25 NG/KG/MIN)
     Route: 042
     Dates: start: 20201203

REACTIONS (14)
  - Back pain [Unknown]
  - Muscle spasms [Unknown]
  - Headache [Unknown]
  - Arthralgia [Unknown]
  - Haematuria [Unknown]
  - Chest pain [Unknown]
  - Pain in jaw [Unknown]
  - Myalgia [Unknown]
  - Erectile dysfunction [Unknown]
  - Burning sensation [Unknown]
  - Dyspnoea [Unknown]
  - Fatigue [Unknown]
  - Pain [Unknown]
  - Neck pain [Unknown]

NARRATIVE: CASE EVENT DATE: 20201218
